FAERS Safety Report 4615984-6 (Version None)
Quarter: 2005Q1

REPORT INFORMATION
  Report Type: 
  Country: None (occurrence: None)
  Receive Date: 20050318
  Receipt Date: 20050311
  Transmission Date: 20050727
  Serious: No
  Sender: FDA-Public Use
  Company Number: 200509277

PATIENT
  Age: 76 Year
  Sex: Female

DRUGS (4)
  1. STREPTASE [Suspect]
     Indication: MYOCARDIAL INFARCTION
     Dosage: 1.5 MIU DAILY IV
     Route: 042
     Dates: start: 20050226, end: 20050226
  2. STREPTASE [Suspect]
     Indication: THROMBOLYSIS
     Dosage: 1.5 MIU DAILY IV
     Route: 042
     Dates: start: 20050226, end: 20050226
  3. STREPTASE [Suspect]
  4. STREPTASE [Suspect]

REACTIONS (9)
  - BLOOD PRESSURE SYSTOLIC INCREASED [None]
  - CHILLS [None]
  - COLD SWEAT [None]
  - FEELING ABNORMAL [None]
  - NAUSEA [None]
  - PALLOR [None]
  - PYREXIA [None]
  - URINARY INCONTINENCE [None]
  - VOMITING [None]
